FAERS Safety Report 18665665 (Version 4)
Quarter: 2021Q1

REPORT INFORMATION
  Report Type: Report from Study
  Country: None (occurrence: US)
  Receive Date: 20201226
  Receipt Date: 20210329
  Transmission Date: 20210419
  Serious: Yes (Hospitalization)
  Sender: FDA-Public Use
  Company Number: US-ABBVIE-20K-163-3685450-00

PATIENT
  Age: 67 Year
  Sex: Female
  Weight: 80.36 kg

DRUGS (4)
  1. VENCLEXTA [Suspect]
     Active Substance: VENETOCLAX
     Indication: REFRACTORY ANAEMIA WITH AN EXCESS OF BLASTS
     Route: 048
     Dates: start: 20200914, end: 20200914
  2. VENCLEXTA [Suspect]
     Active Substance: VENETOCLAX
     Route: 048
     Dates: start: 20200916
  3. VENCLEXTA [Suspect]
     Active Substance: VENETOCLAX
     Indication: MYELODYSPLASTIC SYNDROME
     Route: 048
     Dates: start: 20200915, end: 20200915
  4. DACOGEN [Suspect]
     Active Substance: DECITABINE
     Indication: MYELODYSPLASTIC SYNDROME
     Route: 042
     Dates: start: 20200914

REACTIONS (3)
  - Neutrophil count decreased [Unknown]
  - Off label use [Unknown]
  - Myelodysplastic syndrome [Unknown]

NARRATIVE: CASE EVENT DATE: 2020
